FAERS Safety Report 21946404 (Version 1)
Quarter: 2023Q1

REPORT INFORMATION
  Report Type: Spontaneous
  Country: CN (occurrence: CN)
  Receive Date: 20230202
  Receipt Date: 20230202
  Transmission Date: 20230418
  Serious: Yes (Other)
  Sender: FDA-Public Use
  Company Number: CN-ELI_LILLY_AND_COMPANY-CN202301010162

PATIENT
  Age: 68 Year
  Sex: Female
  Weight: 79 kg

DRUGS (2)
  1. HUMALOG [Suspect]
     Active Substance: INSULIN LISPRO
     Indication: Diabetes mellitus
     Dosage: 6 INTERNATIONAL UNIT, BID
     Route: 058
     Dates: start: 20230104, end: 20230107
  2. HUMALOG [Suspect]
     Active Substance: INSULIN LISPRO
     Indication: Diabetic ketoacidosis
     Dosage: 8 INTERNATIONAL UNIT, EACH EVENING
     Route: 058
     Dates: start: 20230104, end: 20230107

REACTIONS (2)
  - Blood glucose increased [Not Recovered/Not Resolved]
  - Hypokalaemia [Not Recovered/Not Resolved]

NARRATIVE: CASE EVENT DATE: 20230107
